FAERS Safety Report 21670065 (Version 3)
Quarter: 2023Q1

REPORT INFORMATION
  Report Type: Report from Study
  Country: TW (occurrence: TW)
  Receive Date: 20221201
  Receipt Date: 20230328
  Transmission Date: 20230417
  Serious: Yes (Other)
  Sender: FDA-Public Use
  Company Number: TW-JNJFOC-20221151734

PATIENT
  Age: 69 Year
  Sex: Male
  Weight: 68.1 kg

DRUGS (36)
  1. AMIVANTAMAB [Suspect]
     Active Substance: AMIVANTAMAB
     Indication: Non-small cell lung cancer metastatic
     Dosage: MOST RECENT DOSE RECEIVED 09/NOV/2022
     Route: 042
     Dates: start: 20210120
  2. FAMOTIDINE [Concomitant]
     Active Substance: FAMOTIDINE
     Indication: Gastrointestinal disorder therapy
     Route: 048
     Dates: start: 20201216
  3. KETOTIFEN [Concomitant]
     Active Substance: KETOTIFEN
     Indication: Glaucoma
     Route: 047
     Dates: start: 20210128
  4. BRIMONIDINE [Concomitant]
     Active Substance: BRIMONIDINE TARTRATE
     Indication: Glaucoma
     Route: 047
     Dates: start: 20210128
  5. BETAMETHASONE;LIDOCAINE;PHENYLEPHRINE [Concomitant]
     Indication: Haemorrhoids
     Dosage: 1
     Route: 061
     Dates: start: 20210428
  6. BETAMETHASONE;LIDOCAINE;PHENYLEPHRINE [Concomitant]
     Indication: Anal fissure
  7. DOXYCYCLINE [Concomitant]
     Active Substance: DOXYCYCLINE
     Indication: Rash
     Route: 048
     Dates: start: 20210623
  8. DOXYCYCLINE [Concomitant]
     Active Substance: DOXYCYCLINE
     Indication: Paronychia
  9. DOXYCYCLINE [Concomitant]
     Active Substance: DOXYCYCLINE
     Indication: Folliculitis
  10. IMIPRAMINE [Concomitant]
     Active Substance: IMIPRAMINE
     Indication: Prophylaxis
     Route: 048
     Dates: start: 20210721
  11. DIPHENIDOL [DIFENIDOL HYDROCHLORIDE] [Concomitant]
     Indication: Dizziness
     Route: 048
     Dates: start: 20210804
  12. LORAZEPAM [Concomitant]
     Active Substance: LORAZEPAM
     Indication: Insomnia
     Route: 048
     Dates: start: 20210915
  13. METHYLCOBALAMIN [Concomitant]
     Active Substance: METHYLCOBALAMIN
     Indication: Hypoaesthesia
     Route: 048
     Dates: start: 20210929
  14. THIAMINE TETRAHYDROFURFURYL DISULFIDE [Concomitant]
     Indication: Hypoaesthesia
     Route: 048
     Dates: start: 20210929
  15. DICLOXACILLIN [Concomitant]
     Active Substance: DICLOXACILLIN
     Indication: Folliculitis
     Route: 061
     Dates: start: 20220301
  16. LATANOPROST;TIMOLOL [Concomitant]
     Indication: Glaucoma
     Route: 047
     Dates: start: 20220310
  17. TETRACYCLINE [Concomitant]
     Active Substance: TETRACYCLINE
     Indication: Paronychia
     Dosage: 1
     Route: 061
     Dates: start: 20220322
  18. MUPIROCIN [Concomitant]
     Active Substance: MUPIROCIN
     Indication: Paronychia
     Dosage: 1
     Route: 061
     Dates: start: 20220415
  19. CINCHOCAINE;POLICRESULEN [Concomitant]
     Indication: Haemorrhoids
     Route: 054
     Dates: start: 20220420
  20. MOMETASONE [Concomitant]
     Active Substance: MOMETASONE
     Indication: Rash
     Dosage: 1
     Route: 061
     Dates: start: 20220426
  21. DESOXIMETASONE [Concomitant]
     Active Substance: DESOXIMETASONE
     Indication: Paronychia
     Dosage: 1
     Route: 061
     Dates: start: 20220621
  22. SERTACONAZOLE [Concomitant]
     Active Substance: SERTACONAZOLE
     Indication: Folliculitis
     Dosage: 1
     Route: 061
     Dates: start: 20220803
  23. DICLOFENAC [Concomitant]
     Active Substance: DICLOFENAC
     Indication: Paronychia
     Route: 048
     Dates: start: 20220830
  24. CLOBETASOL PROPIONATE [Concomitant]
     Active Substance: CLOBETASOL PROPIONATE
     Indication: Folliculitis
     Dosage: 1
     Route: 061
     Dates: start: 20220927
  25. LEVOCETIRIZINE [Concomitant]
     Active Substance: LEVOCETIRIZINE
     Indication: Folliculitis
     Route: 048
     Dates: start: 20220928
  26. LOPERAMIDE [Concomitant]
     Active Substance: LOPERAMIDE
     Indication: Antidiarrhoeal supportive care
     Route: 048
     Dates: start: 20220928
  27. SENNOSIDES A AND B [Concomitant]
     Active Substance: SENNOSIDES A AND B
     Indication: Haemorrhoids
     Route: 061
     Dates: start: 20221005
  28. SENNOSIDES A AND B [Concomitant]
     Active Substance: SENNOSIDES A AND B
     Indication: Anal fissure
  29. ACETAMINOPHEN [Concomitant]
     Active Substance: ACETAMINOPHEN
     Indication: Haemorrhoids
     Route: 048
     Dates: start: 20221005
  30. MAGNESIUM OXIDE [Concomitant]
     Active Substance: MAGNESIUM OXIDE
     Indication: Haemorrhoids
     Route: 048
     Dates: start: 20221005
  31. MAGNESIUM OXIDE [Concomitant]
     Active Substance: MAGNESIUM OXIDE
     Indication: Anal fissure
  32. BACITRACIN\NEOMYCIN\POLYMYXIN B [Concomitant]
     Active Substance: BACITRACIN\NEOMYCIN\POLYMYXIN B
     Indication: Anal fissure
     Dosage: 1
     Route: 061
     Dates: start: 20221005
  33. UREA [Concomitant]
     Active Substance: UREA
     Indication: Dry skin prophylaxis
     Route: 061
     Dates: start: 20221026, end: 20221129
  34. UREA [Concomitant]
     Active Substance: UREA
     Indication: Dry skin
  35. UREA [Concomitant]
     Active Substance: UREA
     Indication: Pruritus
  36. TAMSULOSIN [Concomitant]
     Active Substance: TAMSULOSIN
     Indication: Prophylaxis
     Route: 048
     Dates: start: 20210721

REACTIONS (1)
  - Hepatitis [Recovered/Resolved]

NARRATIVE: CASE EVENT DATE: 20221122
